FAERS Safety Report 11267020 (Version 2)
Quarter: 2015Q4

REPORT INFORMATION
  Report Type: Spontaneous
  Country: US (occurrence: US)
  Receive Date: 20150713
  Receipt Date: 20151116
  Transmission Date: 20160304
  Serious: Yes (Hospitalization, Other)
  Sender: FDA-Public Use
  Company Number: US-DSJP-DSU-2015-109632

PATIENT

DRUGS (2)
  1. BENICAR HCT [Suspect]
     Active Substance: HYDROCHLOROTHIAZIDE\OLMESARTAN MEDOXOMIL
     Indication: HYPERTENSION
     Dosage: 40/12.5 MG
     Dates: start: 20070601, end: 20071111
  2. BENICAR HCT [Suspect]
     Active Substance: HYDROCHLOROTHIAZIDE\OLMESARTAN MEDOXOMIL
     Dosage: 20/12.5 MG.QD
     Route: 048
     Dates: start: 20060720, end: 20140326

REACTIONS (8)
  - Constipation [Unknown]
  - Anxiety [Unknown]
  - Gastroenteritis [Unknown]
  - Depression [Unknown]
  - Dizziness [Unknown]
  - Impaired gastric emptying [Unknown]
  - Malabsorption [Unknown]
  - Gastrointestinal injury [Unknown]

NARRATIVE: CASE EVENT DATE: 2009
